FAERS Safety Report 24950251 (Version 1)
Quarter: 2025Q1

REPORT INFORMATION
  Report Type: Report from Study
  Country: US (occurrence: US)
  Receive Date: 20250210
  Receipt Date: 20250210
  Transmission Date: 20250409
  Serious: Yes (Death, Hospitalization)
  Sender: NOVARTIS
  Company Number: US-002147023-NVSC2025US018328

PATIENT
  Age: 68 Year
  Sex: Male
  Weight: 45 kg

DRUGS (1)
  1. LAMPRENE [Suspect]
     Active Substance: CLOFAZIMINE
     Indication: Mycobacterium avium complex infection
     Route: 065
     Dates: start: 20241028

REACTIONS (2)
  - Pneumothorax [Fatal]
  - Chronic obstructive pulmonary disease [Fatal]

NARRATIVE: CASE EVENT DATE: 20250126
